FAERS Safety Report 11149595 (Version 4)
Quarter: 2016Q1

REPORT INFORMATION
  Report Type: Spontaneous
  Country: FR (occurrence: DZ)
  Receive Date: 20150529
  Receipt Date: 20160222
  Transmission Date: 20160525
  Serious: Yes (Death, Hospitalization, Disabling)
  Sender: FDA-Public Use
  Company Number: FR-MYLANLABS-2015M1017745

PATIENT

DRUGS (9)
  1. CYSTAGON [Suspect]
     Active Substance: CYSTEAMINE BITARTRATE
     Dosage: 40MG/KG EVERY DAY
     Route: 050
     Dates: start: 20150204, end: 20150220
  2. CYSTAGON [Suspect]
     Active Substance: CYSTEAMINE BITARTRATE
     Dosage: 50MG/KG EVERY DAY
     Route: 050
     Dates: start: 20150221, end: 20150415
  3. CYSTAGON [Suspect]
     Active Substance: CYSTEAMINE BITARTRATE
     Indication: CYSTINOSIS
     Dosage: 10MG/KG EVERY DAY
     Route: 050
     Dates: start: 20150124, end: 20150130
  4. VITAMIN D [Concomitant]
     Active Substance: CHOLECALCIFEROL
     Dosage: 500 MG, QD
     Dates: start: 20150124
  5. CYSTAGON [Suspect]
     Active Substance: CYSTEAMINE BITARTRATE
     Dosage: 50MG/KG EVERY DAY
     Route: 050
     Dates: start: 20150418, end: 20150419
  6. BICARBONATE [Concomitant]
     Active Substance: BICARBONATE ION
     Dosage: 1 G, BID
     Route: 048
     Dates: start: 20150124
  7. CYSTAGON [Suspect]
     Active Substance: CYSTEAMINE BITARTRATE
     Dosage: 20MG/KG EVERY DAY
     Route: 050
     Dates: start: 20150131, end: 20150206
  8. PHOSPHONEUROS [Concomitant]
     Active Substance: CALCIUM PHOSPHATE, DIBASIC, ANHYDROUS\MAGNESIUM GLYCEROPHOSPHATE\PHOSPHORIC ACID\SODIUM PHOSPHATE, DIBASIC
     Dosage: 25 ML, TID
     Dates: start: 20150124
  9. CYSTAGON [Suspect]
     Active Substance: CYSTEAMINE BITARTRATE
     Dosage: 30MG/KG EVERY DAY
     Route: 050
     Dates: start: 20150207, end: 20150213

REACTIONS (5)
  - Septic shock [Fatal]
  - Hypovolaemic shock [Fatal]
  - Dehydration [Fatal]
  - Allergic gastroenteritis [Not Recovered/Not Resolved]
  - Incorrect route of drug administration [Recovered/Resolved]

NARRATIVE: CASE EVENT DATE: 20150409
